FAERS Safety Report 11248195 (Version 1)
Quarter: 2015Q3

REPORT INFORMATION
  Report Type: Spontaneous
  Country: MX (occurrence: MX)
  Receive Date: 20150708
  Receipt Date: 20150708
  Transmission Date: 20151125
  Serious: Yes (Death, Hospitalization, Other)
  Sender: FDA-Public Use
  Company Number: PHHY2015MX078153

PATIENT
  Age: 3 Month
  Sex: Male
  Weight: 3.4 kg

DRUGS (1)
  1. AMITRIPTYLINE [Suspect]
     Active Substance: AMITRIPTYLINE
     Indication: DEPRESSION
     Route: 065

REACTIONS (15)
  - Arrhythmia neonatal [Fatal]
  - Abdominal distension [Unknown]
  - Electrocardiogram QT prolonged [Fatal]
  - Foetal exposure during pregnancy [Fatal]
  - Systemic inflammatory response syndrome [Fatal]
  - Long QT syndrome congenital [Fatal]
  - Pneumonia [Unknown]
  - Cardiac murmur [Fatal]
  - Tachycardia [Fatal]
  - Haemangioma [Fatal]
  - Premature baby [Unknown]
  - Cardiac fibrillation [Fatal]
  - Syndactyly [Unknown]
  - Respiratory failure [Fatal]
  - Diarrhoea haemorrhagic [Fatal]
